FAERS Safety Report 9013377 (Version 1)
Quarter: 2013Q1

REPORT INFORMATION
  Report Type: Spontaneous
  Country: US (occurrence: None)
  Receive Date: 20130107
  Receipt Date: 20130107
  Transmission Date: 20140127
  Serious: No
  Sender: FDA-Public Use
  Company Number: None

PATIENT
  Sex: Female
  Weight: 132.22 kg

DRUGS (3)
  1. BUPROPION SR 150 MG WATSON [Suspect]
  2. WELLBUTRIN [Suspect]
     Dosage: 150 MG SR BID PO
     Route: 048
     Dates: start: 201210
  3. WELLBUTRIN [Suspect]
     Dosage: 150 MG SR BID PO
     Route: 048
     Dates: start: 201210

REACTIONS (5)
  - Anxiety [None]
  - Mood swings [None]
  - Impaired driving ability [None]
  - Impaired work ability [None]
  - Activities of daily living impaired [None]
